FAERS Safety Report 15931868 (Version 2)
Quarter: 2019Q1

REPORT INFORMATION
  Report Type: Spontaneous
  Country: CO (occurrence: CO)
  Receive Date: 20190207
  Receipt Date: 20190222
  Transmission Date: 20190417
  Serious: Yes (Hospitalization)
  Sender: FDA-Public Use
  Company Number: CO-BAYER-2018-243766

PATIENT
  Age: 72 Year
  Sex: Female

DRUGS (1)
  1. ULTRAVIST [Suspect]
     Active Substance: IOPROMIDE
     Dosage: 80 ML, QD
     Route: 042
     Dates: start: 20181222, end: 20181222

REACTIONS (6)
  - Cardio-respiratory arrest [Not Recovered/Not Resolved]
  - Dyspnoea [None]
  - Pulmonary oedema [Not Recovered/Not Resolved]
  - Neurological decompensation [None]
  - Rash [None]
  - Anaphylactic reaction [Not Recovered/Not Resolved]

NARRATIVE: CASE EVENT DATE: 20181222
